FAERS Safety Report 23198677 (Version 2)
Quarter: 2024Q1

REPORT INFORMATION
  Report Type: Spontaneous
  Country: BR (occurrence: BR)
  Receive Date: 20231117
  Receipt Date: 20240202
  Transmission Date: 20240410
  Serious: Yes (Other)
  Sender: FDA-Public Use
  Company Number: BR-TEVA BRAZIL-2023-BR-2944722

PATIENT
  Age: 1 Year
  Sex: Female

DRUGS (2)
  1. COPAXONE [Suspect]
     Active Substance: GLATIRAMER ACETATE
     Indication: Multiple sclerosis
     Dosage: TIME INTERVAL: 0.333 WEEKS: DOSAGE TEXT: COPAXONE 40MG/ML, THREE TIMES PER WEEK
     Route: 063
     Dates: start: 2022
  2. COPAXONE [Suspect]
     Active Substance: GLATIRAMER ACETATE
     Indication: Multiple sclerosis
     Dosage: TIME INTERVAL: 0.333 WEEKS: DOSAGE TEXT: COPAXONE 40MG/ML, THREE TIMES PER WEEK
     Route: 064
     Dates: start: 20200212

REACTIONS (4)
  - Inability to crawl [Recovered/Resolved]
  - Musculoskeletal stiffness [Not Recovered/Not Resolved]
  - Foetal exposure during pregnancy [Unknown]
  - Exposure via breast milk [Unknown]
